FAERS Safety Report 23263682 (Version 1)
Quarter: 2023Q4

REPORT INFORMATION
  Report Type: Spontaneous
  Country: US (occurrence: None)
  Receive Date: 20231205
  Receipt Date: 20231205
  Transmission Date: 20240110
  Serious: Yes (Death)
  Sender: FDA-Public Use
  Company Number: None

PATIENT
  Age: 30 Year
  Sex: Male

DRUGS (1)
  1. PULMOZYME [Suspect]
     Active Substance: DORNASE ALFA
     Dosage: FREQUENCY : TWICE A DAY;?
     Dates: end: 20231112

REACTIONS (1)
  - Death [None]

NARRATIVE: CASE EVENT DATE: 20231112
